FAERS Safety Report 6253834-5 (Version None)
Quarter: 2009Q3

REPORT INFORMATION
  Report Type: 
  Country: None (occurrence: None)
  Receive Date: 20090701
  Receipt Date: 20090701
  Transmission Date: 20100115
  Serious: No
  Sender: FDA-Public Use
  Company Number: None

PATIENT
  Sex: Female

DRUGS (2)
  1. ALPRAZOLAM [Suspect]
     Indication: ANXIETY
     Dosage: .25MG ONCE TID
  2. ALPRAZOLAM [Suspect]
     Indication: DEPRESSION
     Dosage: .25MG ONCE TID

REACTIONS (6)
  - ANGER [None]
  - DEPRESSION [None]
  - FEELING ABNORMAL [None]
  - IRRITABILITY [None]
  - MALAISE [None]
  - PRODUCT SUBSTITUTION ISSUE [None]
